FAERS Safety Report 8037832-7 (Version None)
Quarter: 2012Q1

REPORT INFORMATION
  Report Type: 
  Country: None (occurrence: None)
  Receive Date: 20120111
  Receipt Date: 20120106
  Transmission Date: 20120608
  Serious: Yes (Congenital Anomaly)
  Sender: FDA-Public Use
  Company Number: PHHY2011FR102164

PATIENT
  Sex: Female
  Weight: 3.3 kg

DRUGS (5)
  1. CLOZAPINE [Suspect]
     Indication: BIPOLAR DISORDER
     Dosage: 300 MG, QD
     Route: 064
     Dates: start: 20110107, end: 20110921
  2. CLONAZEPAM [Concomitant]
     Indication: BIPOLAR DISORDER
     Dosage: 1 MG, DAILY
     Route: 064
     Dates: start: 20110107, end: 20110501
  3. ABILIFY [Concomitant]
     Indication: BIPOLAR DISORDER
     Dosage: 15 MG, DAILY
     Route: 064
     Dates: start: 20110107, end: 20110921
  4. DEPAKOTE [Concomitant]
     Indication: BIPOLAR DISORDER
     Dosage: 1000 MG, DAILY
     Route: 064
     Dates: start: 20110107, end: 20110127
  5. FOLIC ACID [Concomitant]
     Dosage: 4 MG, DAILY
     Route: 064
     Dates: start: 20110101, end: 20111001

REACTIONS (3)
  - CONGENITAL HYPOTHYROIDISM [None]
  - FOETAL EXPOSURE DURING PREGNANCY [None]
  - UMBILICAL CORD SHORT [None]
